FAERS Safety Report 21755966 (Version 14)
Quarter: 2024Q4

REPORT INFORMATION
  Report Type: Report from Study
  Country: MX (occurrence: MX)
  Receive Date: 20221220
  Receipt Date: 20241115
  Transmission Date: 20250114
  Serious: Yes (Life-Threatening, Other)
  Sender: NOVARTIS
  Company Number: MX-002147023-NVSC2022MX167328

PATIENT
  Age: 60 Year
  Sex: Female
  Weight: 72 kg

DRUGS (13)
  1. KISQALI [Suspect]
     Active Substance: RIBOCICLIB
     Indication: Breast cancer
     Dosage: 600 MG, QD (3 X 200 MG AT 10 AM)
     Route: 048
     Dates: start: 202204
  2. KISQALI [Suspect]
     Active Substance: RIBOCICLIB
     Indication: Metastases to lung
     Dosage: 600 MG
     Route: 048
  3. KISQALI [Suspect]
     Active Substance: RIBOCICLIB
     Dosage: UNK
     Route: 048
  4. KISQALI [Suspect]
     Active Substance: RIBOCICLIB
     Dosage: 3 DOSAGE FORM, QD
     Route: 048
     Dates: start: 20220601
  5. KISQALI [Suspect]
     Active Substance: RIBOCICLIB
     Dosage: 600 MG, QD (3 X 200 MG)
     Route: 048
     Dates: start: 202206
  6. KISQALI [Suspect]
     Active Substance: RIBOCICLIB
     Dosage: 3 DOSAGE FORM, QD
     Route: 048
  7. KISQALI [Suspect]
     Active Substance: RIBOCICLIB
     Dosage: 3 DOSAGE FORM (3 OF 200MG), QD
     Route: 048
  8. KISQALI [Suspect]
     Active Substance: RIBOCICLIB
     Dosage: 3 DOSAGE FORM, QD (2 OF 200 MG)
     Route: 048
  9. KISQALI [Suspect]
     Active Substance: RIBOCICLIB
     Dosage: 3 DOSAGE FORM, QD
     Route: 048
  10. ENSURE [Concomitant]
     Active Substance: AMINO ACIDS\DEXTROSE\ELECTROLYTES NOS\SOYBEAN OIL\VITAMINS
     Indication: Product used for unknown indication
     Dosage: 3 DOSAGE FORM, QD (AT 10 AM OF 200 MG EACH, 600 MG TOTAL)
     Route: 065
     Dates: start: 20220718
  11. LEVOTHYROXINE SODIUM [Concomitant]
     Active Substance: LEVOTHYROXINE SODIUM
     Indication: Hypothyroidism
     Dosage: 1 DOSAGE FORM, QD
     Route: 048
     Dates: start: 2010
  12. CALCIUM\VITAMIN D [Concomitant]
     Active Substance: CALCIUM\VITAMIN D
     Indication: Osteoporosis prophylaxis
     Dosage: 2 DOSAGE FORM, QD
     Route: 048
     Dates: start: 202206
  13. LETROZOLE [Concomitant]
     Active Substance: LETROZOLE
     Indication: Neoplasm malignant
     Dosage: 1 DOSAGE FORM, QD
     Route: 048
     Dates: start: 202206

REACTIONS (48)
  - Tachycardia [Not Recovered/Not Resolved]
  - Myalgia [Unknown]
  - Thyroid pain [Unknown]
  - Arthralgia [Unknown]
  - Weight increased [Not Recovered/Not Resolved]
  - Musculoskeletal discomfort [Unknown]
  - Metastases to lung [Not Recovered/Not Resolved]
  - Arrhythmia [Not Recovered/Not Resolved]
  - Feeding disorder [Unknown]
  - Oropharyngeal discomfort [Not Recovered/Not Resolved]
  - Inflammation [Recovered/Resolved]
  - Throat irritation [Not Recovered/Not Resolved]
  - Dysphagia [Not Recovered/Not Resolved]
  - Abdominal discomfort [Unknown]
  - Headache [Recovered/Resolved]
  - Tumour pain [Recovering/Resolving]
  - Somnolence [Not Recovered/Not Resolved]
  - Skin burning sensation [Not Recovered/Not Resolved]
  - Hyperkeratosis [Unknown]
  - Blister [Recovering/Resolving]
  - Musculoskeletal stiffness [Unknown]
  - Weight decreased [Unknown]
  - Pain in extremity [Recovering/Resolving]
  - Drug intolerance [Unknown]
  - Asthenia [Unknown]
  - Diarrhoea [Not Recovered/Not Resolved]
  - Lip dry [Recovering/Resolving]
  - Dyspepsia [Not Recovered/Not Resolved]
  - Dry skin [Not Recovered/Not Resolved]
  - Skin exfoliation [Not Recovered/Not Resolved]
  - Erythema [Unknown]
  - Fatigue [Not Recovered/Not Resolved]
  - Hypotonia [Unknown]
  - Ill-defined disorder [Unknown]
  - Hunger [Unknown]
  - Productive cough [Unknown]
  - Cough [Unknown]
  - Depressed mood [Unknown]
  - Rectal tenesmus [Unknown]
  - Nausea [Not Recovered/Not Resolved]
  - Urticaria [Not Recovered/Not Resolved]
  - Acne [Not Recovered/Not Resolved]
  - Fall [Recovered/Resolved]
  - Ligament sprain [Recovering/Resolving]
  - Gait disturbance [Unknown]
  - Arthritis [Not Recovered/Not Resolved]
  - Joint swelling [Not Recovered/Not Resolved]
  - Asthma [Unknown]

NARRATIVE: CASE EVENT DATE: 20220601
